FAERS Safety Report 8921134 (Version 2)
Quarter: 2012Q4

REPORT INFORMATION
  Report Type: 
  Country: US (occurrence: US)
  Receive Date: 20121121
  Receipt Date: 20121210
  Transmission Date: 20130627
  Serious: Yes (Other)
  Sender: FDA-Public Use
  Company Number: US-BAXTER-2012BAX024300

PATIENT
  Age: 38 Year
  Sex: Female

DRUGS (1)
  1. GAMMAGARD S/D [Suspect]
     Indication: AUTOIMMUNE DEFICIENCY SYNDROME

REACTIONS (4)
  - Babesiosis [Unknown]
  - Pyrexia [Unknown]
  - Dizziness [Unknown]
  - Vomiting [Unknown]
